FAERS Safety Report 10158697 (Version 2)
Quarter: 2014Q2

REPORT INFORMATION
  Report Type: Spontaneous
  Country: US (occurrence: US)
  Receive Date: 20140508
  Receipt Date: 20140508
  Transmission Date: 20141212
  Serious: No
  Sender: FDA-Public Use
  Company Number: US-TEVA-406793USA

PATIENT
  Age: 33 Year
  Sex: Female

DRUGS (6)
  1. CLARAVIS [Suspect]
     Route: 048
  2. METHADONE [Concomitant]
     Indication: PAIN
  3. WELLBUTRIN [Concomitant]
     Indication: DEPRESSION
  4. TOPAMAX [Concomitant]
     Indication: DEPRESSION
  5. XANAX [Concomitant]
     Indication: ANXIETY
  6. BIRTH CONTROL [Concomitant]

REACTIONS (1)
  - Alopecia [Not Recovered/Not Resolved]
